FAERS Safety Report 7311738-0 (Version None)
Quarter: 2011Q1

REPORT INFORMATION
  Report Type: 
  Country: None (occurrence: None)
  Receive Date: 20110224
  Receipt Date: 20110218
  Transmission Date: 20110831
  Serious: Yes (Life-Threatening, Disabling, Other)
  Sender: FDA-Public Use
  Company Number: US-MERCK-1102USA02363

PATIENT
  Age: 48 Year
  Sex: Male

DRUGS (7)
  1. THERAPEUTIC RADIOPHARMACEUTICAL (UNSPECIFIED) [Concomitant]
     Route: 065
  2. MAGNESIUM SULFATE [Concomitant]
     Route: 065
  3. ANTINEOPLASTIC (UNSPECIFIED) [Concomitant]
     Route: 065
  4. POTASSIUM (UNSPECIFIED) [Concomitant]
     Route: 065
  5. IVEMEND [Suspect]
     Indication: PROPHYLAXIS OF NAUSEA AND VOMITING
     Route: 041
     Dates: start: 20110218, end: 20110218
  6. CISPLATIN [Concomitant]
     Route: 065
  7. MANNITOL [Concomitant]
     Route: 065

REACTIONS (10)
  - GRAND MAL CONVULSION [None]
  - MUSCLE SPASMS [None]
  - SKIN DISCOLOURATION [None]
  - INFUSION SITE REACTION [None]
  - UNDERDOSE [None]
  - BRADYCARDIA [None]
  - MALAISE [None]
  - LOSS OF CONSCIOUSNESS [None]
  - NAUSEA [None]
  - OXYGEN SATURATION DECREASED [None]
